FAERS Safety Report 7582010-9 (Version None)
Quarter: 2011Q2

REPORT INFORMATION
  Report Type: 
  Country: None (occurrence: None)
  Receive Date: 20110630
  Receipt Date: 20110620
  Transmission Date: 20111010
  Serious: No
  Sender: FDA-Public Use
  Company Number: US-BIOGENIDEC-2010BI029448

PATIENT
  Age: 55 Year
  Sex: Female

DRUGS (2)
  1. AVONEX [Concomitant]
     Indication: MULTIPLE SCLEROSIS
     Route: 030
     Dates: start: 20091012
  2. TYSABRI [Suspect]
     Indication: MULTIPLE SCLEROSIS
     Route: 042
     Dates: start: 20100415, end: 20110120

REACTIONS (22)
  - PAIN [None]
  - JOINT INJURY [None]
  - HEARING IMPAIRED [None]
  - DIZZINESS [None]
  - URINARY TRACT INFECTION [None]
  - INSOMNIA [None]
  - DYSARTHRIA [None]
  - BLOOD URINE PRESENT [None]
  - MUSCLE SPASMS [None]
  - PAIN IN EXTREMITY [None]
  - EMOTIONAL POVERTY [None]
  - FATIGUE [None]
  - STRESS [None]
  - ASTHENIA [None]
  - FALL [None]
  - MUSCLE TWITCHING [None]
  - ABDOMINAL PAIN [None]
  - MOBILITY DECREASED [None]
  - DEPRESSION [None]
  - VISION BLURRED [None]
  - HYPOAESTHESIA [None]
  - SOMNAMBULISM [None]
